FAERS Safety Report 6870209-6 (Version None)
Quarter: 2010Q3

REPORT INFORMATION
  Report Type: 
  Country: None (occurrence: None)
  Receive Date: 20100723
  Receipt Date: 20100716
  Transmission Date: 20110219
  Serious: Yes (Hospitalization)
  Sender: FDA-Public Use
  Company Number: US-BIOGENIDEC-2010BI024393

PATIENT
  Age: 53 Year
  Sex: Female
  Weight: 47 kg

DRUGS (8)
  1. TYSABRI [Suspect]
     Indication: MULTIPLE SCLEROSIS
     Route: 042
     Dates: start: 20090310
  2. METHADONE HCL [Concomitant]
     Indication: PAIN
  3. OXYBUTYNIN CHLORIDE [Concomitant]
     Indication: INCONTINENCE
  4. SOMA [Concomitant]
     Indication: BACK PAIN
  5. AMBIEN [Concomitant]
     Indication: INSOMNIA
  6. TRAMADOL [Concomitant]
     Indication: BACK PAIN
  7. TIZANIDINE HCL [Concomitant]
     Indication: MYALGIA
  8. AMITIZA [Concomitant]
     Indication: CONSTIPATION

REACTIONS (5)
  - APHASIA [None]
  - CEREBROVASCULAR ACCIDENT [None]
  - FALL [None]
  - MALAISE [None]
  - MEMORY IMPAIRMENT [None]
